FAERS Safety Report 6918200-5 (Version None)
Quarter: 2010Q3

REPORT INFORMATION
  Report Type: 
  Country: None (occurrence: None)
  Receive Date: 20100806
  Receipt Date: 20100610
  Transmission Date: 20110219
  Serious: Yes (Other)
  Sender: FDA-Public Use
  Company Number: DSA_43265_2010

PATIENT
  Sex: Male

DRUGS (3)
  1. XENAZINE [Suspect]
     Indication: HUNTINGTON'S DISEASE
     Dosage: (12.5 MG TID ORAL)
     Route: 048
     Dates: start: 20100105
  2. LEXAPRO [Suspect]
     Indication: PRODUCT USED FOR UNKNOWN INDICATION
     Dosage: (DF), (DF)
     Dates: start: 20100501, end: 20100101
  3. LEXAPRO [Suspect]
     Indication: PRODUCT USED FOR UNKNOWN INDICATION
     Dosage: (DF), (DF)
     Dates: start: 20100101

REACTIONS (2)
  - FEELING ABNORMAL [None]
  - MOVEMENT DISORDER [None]
